FAERS Safety Report 12662404 (Version 3)
Quarter: 2019Q2

REPORT INFORMATION
  Report Type: Spontaneous
  Country: US (occurrence: US)
  Receive Date: 20160817
  Receipt Date: 20190409
  Transmission Date: 20190711
  Serious: Yes (Death, Hospitalization, Other)
  Sender: FDA-Public Use
  Company Number: US-ASTRAZENECA-2016SE88059

PATIENT
  Age: 22342 Day
  Sex: Male

DRUGS (22)
  1. ONGLYZA [Suspect]
     Active Substance: SAXAGLIPTIN HYDROCHLORIDE
     Indication: TYPE 2 DIABETES MELLITUS
     Route: 048
     Dates: start: 2010, end: 20151106
  2. ONGLYZA [Suspect]
     Active Substance: SAXAGLIPTIN HYDROCHLORIDE
     Indication: TYPE 2 DIABETES MELLITUS
     Route: 048
     Dates: start: 20120712
  3. PLAVIX [Concomitant]
     Active Substance: CLOPIDOGREL BISULFATE
  4. MELOXICAM. [Concomitant]
     Active Substance: MELOXICAM
  5. CEPHALEXIN. [Concomitant]
     Active Substance: CEPHALEXIN
  6. FUROSEMIDE. [Concomitant]
     Active Substance: FUROSEMIDE
  7. BUMETANIDE. [Concomitant]
     Active Substance: BUMETANIDE
  8. KOMBIGLYZE XR [Suspect]
     Active Substance: METFORMIN HYDROCHLORIDE\SAXAGLIPTIN HYDROCHLORIDE
     Indication: TYPE 2 DIABETES MELLITUS
     Route: 048
     Dates: start: 2012, end: 2015
  9. CLONAZEPAM. [Concomitant]
     Active Substance: CLONAZEPAM
  10. CYCLOBENZAPRINE. [Concomitant]
     Active Substance: CYCLOBENZAPRINE
  11. CARBIDOPA. [Concomitant]
     Active Substance: CARBIDOPA
  12. ONGLYZA [Suspect]
     Active Substance: SAXAGLIPTIN HYDROCHLORIDE
     Indication: TYPE 2 DIABETES MELLITUS
     Route: 048
     Dates: start: 2012, end: 2015
  13. PRAMIPEXOLE. [Concomitant]
     Active Substance: PRAMIPEXOLE
  14. METOLAZONE. [Concomitant]
     Active Substance: METOLAZONE
  15. METFORMIN [Concomitant]
     Active Substance: METFORMIN HYDROCHLORIDE
  16. FENTANYL. [Concomitant]
     Active Substance: FENTANYL
  17. CARVEDILOL. [Concomitant]
     Active Substance: CARVEDILOL
  18. AMOXICILLIN. [Concomitant]
     Active Substance: AMOXICILLIN
  19. CRESTOR [Concomitant]
     Active Substance: ROSUVASTATIN CALCIUM
  20. CLONAZEPAM. [Concomitant]
     Active Substance: CLONAZEPAM
  21. LISINOPRIL. [Concomitant]
     Active Substance: LISINOPRIL
  22. ROPINIROLE. [Concomitant]
     Active Substance: ROPINIROLE

REACTIONS (5)
  - Cardiac failure congestive [Unknown]
  - Myocardial ischaemia [Fatal]
  - Chronic left ventricular failure [Unknown]
  - Cardiac failure [Unknown]
  - Cardiovascular disorder [Unknown]

NARRATIVE: CASE EVENT DATE: 20120109
